FAERS Safety Report 8289974-9 (Version None)
Quarter: 2012Q2

REPORT INFORMATION
  Report Type: 
  Country: None (occurrence: None)
  Receive Date: 20120417
  Receipt Date: 20120410
  Transmission Date: 20120825
  Serious: Yes (Death)
  Sender: FDA-Public Use
  Company Number: US-CELGENEUS-163-21880-11114130

PATIENT
  Sex: Female

DRUGS (38)
  1. PAROXETINE [Concomitant]
     Dosage: 20 MILLIGRAM
     Route: 048
  2. TRAMADOL HCL [Concomitant]
     Dosage: 50 MILLIGRAM
     Route: 048
  3. XANAX [Concomitant]
     Indication: ANXIETY
     Dosage: .5 MILLIGRAM
     Route: 048
  4. XANAX [Concomitant]
     Indication: TREMOR
  5. HYDROCODONE [Concomitant]
     Route: 065
  6. BENADRYL [Concomitant]
     Dosage: 25 MILLIGRAM
     Route: 048
  7. PROMETHAZINE HCL [Concomitant]
     Indication: NAUSEA
     Dosage: 25 MILLIGRAM
     Route: 048
  8. LEXAPRO [Concomitant]
     Route: 065
  9. ZESTRIL [Concomitant]
     Route: 065
  10. ACYCLOVIR [Concomitant]
     Dosage: 800 MILLIGRAM
     Route: 048
  11. ROBITUSSIN DM [Concomitant]
     Dosage: 200-10MG/5
     Route: 048
  12. ASPIRIN [Concomitant]
     Dosage: 325 MILLIGRAM
     Route: 048
  13. ENSURE PLUS [Concomitant]
     Dosage: 4 MILLIGRAM
     Route: 048
  14. OXYCONTIN [Concomitant]
     Indication: PAIN
     Dosage: 80 MILLIGRAM
     Route: 048
  15. REVLIMID [Suspect]
     Indication: MULTIPLE MYELOMA
     Dosage: 10 MILLIGRAM
     Route: 048
     Dates: start: 20101021, end: 20111123
  16. CELEBREX [Concomitant]
     Route: 065
  17. LYRICA [Concomitant]
     Dosage: 50 MILLIGRAM
     Route: 048
  18. ULTRAM [Concomitant]
     Route: 065
  19. LEVAQUIN [Concomitant]
     Dosage: 750 MILLIGRAM
     Route: 048
  20. BISPHOSPHONATE [Concomitant]
     Route: 041
  21. PANTOPRAZOLE SODIUM [Concomitant]
     Dosage: 40 MILLIGRAM
     Route: 048
  22. NORCO [Concomitant]
     Indication: PAIN
     Dosage: 10-325MG
     Route: 048
  23. ADVAIR DISKUS 100/50 [Concomitant]
     Route: 065
  24. ATIVAN [Concomitant]
     Route: 065
  25. MAXALT [Concomitant]
     Route: 065
  26. DEXAMETHASONE [Concomitant]
     Dosage: 20 MILLIGRAM
     Route: 048
  27. LITHIUM [Concomitant]
     Route: 065
  28. ZOFRAN [Concomitant]
     Dosage: 8 MILLIGRAM
     Route: 048
  29. AMITRIPTYLINE HCL [Concomitant]
     Dosage: 10 MILLIGRAM
     Route: 048
  30. DIFLUCAN [Concomitant]
     Dosage: 200 MILLIGRAM
     Route: 048
  31. DILAUDID [Concomitant]
     Indication: PAIN
     Dosage: 4 MILLIGRAM
     Route: 048
  32. MELPHALAN HYDROCHLORIDE [Concomitant]
     Dosage: 10 MILLIGRAM
     Route: 048
  33. RELPAX [Concomitant]
     Dosage: 40 MILLIGRAM
     Route: 048
  34. ALBUTEROL SULFATE [Concomitant]
     Dosage: 2.5/0.5
     Route: 055
  35. CYMBALTA [Concomitant]
     Route: 065
  36. LEVAQUIN [Concomitant]
     Indication: RESPIRATORY FAILURE
     Dosage: 500 MILLIGRAM
     Route: 048
  37. SOLU-CORTEF [Concomitant]
     Indication: HYPOTENSION
     Route: 065
  38. EXCEDRIN (MIGRAINE) [Concomitant]
     Indication: MIGRAINE
     Dosage: 250-250-65
     Route: 048

REACTIONS (1)
  - CARDIAC ARREST [None]
